FAERS Safety Report 10387105 (Version 1)
Quarter: 2014Q1

REPORT INFORMATION
  Report Type: Spontaneous
  Country: US (occurrence: None)
  Receive Date: 20140306
  Receipt Date: 20140306
  Transmission Date: 20141002
  Serious: Yes (Hospitalization, Other)
  Sender: FDA-Public Use
  Company Number: 163-21880-13093060

PATIENT
  Age: 76 Year
  Sex: Male

DRUGS (1)
  1. REVLIMID [Suspect]
     Indication: PLASMA CELL MYELOMA
     Route: 048
     Dates: start: 20130911, end: 20130917

REACTIONS (7)
  - Clostridium difficile colitis [None]
  - Fatigue [None]
  - Pyrexia [None]
  - Dyspnoea [None]
  - Local swelling [None]
  - Malaise [None]
  - General physical health deterioration [None]
